FAERS Safety Report 4841027-5 (Version None)
Quarter: 2005Q4

REPORT INFORMATION
  Report Type: 
  Country: None (occurrence: None)
  Receive Date: 20051130
  Receipt Date: 20050829
  Transmission Date: 20060501
  Serious: Yes (Hospitalization)
  Sender: FDA-Public Use
  Company Number: US-BRISTOL-MYERS SQUIBB COMPANY-13092903

PATIENT
  Age: 45 Year
  Sex: Female
  Weight: 91 kg

DRUGS (4)
  1. ABILIFY [Suspect]
     Indication: MAJOR DEPRESSION
     Dosage: DOSAGE: INITIATED AT 10MG ON 14-OCT-2004
     Route: 048
     Dates: start: 20041014
  2. ABILIFY [Suspect]
     Indication: PSYCHOTIC DISORDER
     Dosage: DOSAGE: INITIATED AT 10MG ON 14-OCT-2004
     Route: 048
     Dates: start: 20041014
  3. TRAZODONE HCL [Concomitant]
  4. WELLBUTRIN XL [Concomitant]

REACTIONS (2)
  - HALLUCINATION, AUDITORY [None]
  - PANCREATITIS [None]
